FAERS Safety Report 12606397 (Version 1)
Quarter: 2016Q3

REPORT INFORMATION
  Report Type: Spontaneous
  Country: GB (occurrence: GB)
  Receive Date: 20160729
  Receipt Date: 20160729
  Transmission Date: 20161109
  Serious: Yes (Other)
  Sender: FDA-Public Use
  Company Number: GB-GLAXOSMITHKLINE-GB2016GSK108175

PATIENT
  Sex: Male

DRUGS (5)
  1. SERETIDE [Suspect]
     Active Substance: FLUTICASONE PROPIONATE\SALMETEROL XINAFOATE
     Dosage: UNK
     Route: 055
  2. TIOTROPIUM [Concomitant]
     Active Substance: TIOTROPIUM
     Indication: PRODUCT USED FOR UNKNOWN INDICATION
  3. OMEPRAZOLE. [Concomitant]
     Active Substance: OMEPRAZOLE
     Indication: PRODUCT USED FOR UNKNOWN INDICATION
  4. MONTELUKAST [Concomitant]
     Active Substance: MONTELUKAST SODIUM
     Indication: PRODUCT USED FOR UNKNOWN INDICATION
  5. SERETIDE [Suspect]
     Active Substance: FLUTICASONE PROPIONATE\SALMETEROL XINAFOATE
     Indication: ASTHMA
     Dosage: UNK
     Route: 055

REACTIONS (11)
  - Leishmaniasis [Recovered/Resolved]
  - Oropharyngeal candidiasis [Unknown]
  - Immunosuppression [Unknown]
  - Pseudomonas infection [Unknown]
  - Tracheal inflammation [Recovering/Resolving]
  - Dysphonia [Recovering/Resolving]
  - Vocal cord cyst [Recovering/Resolving]
  - Laryngeal ulceration [Recovered/Resolved]
  - Condition aggravated [Recovering/Resolving]
  - Oropharyngeal plaque [Recovering/Resolving]
  - Laryngeal oedema [Recovering/Resolving]
